FAERS Safety Report 4789465-3 (Version None)
Quarter: 2005Q3

REPORT INFORMATION
  Report Type: 
  Country: None (occurrence: None)
  Receive Date: 20050914
  Receipt Date: 20040920
  Transmission Date: 20060218
  Serious: Yes (Death, Hospitalization)
  Sender: FDA-Public Use
  Company Number: 163-20785-04090492

PATIENT
  Age: 69 Year
  Sex: Female

DRUGS (9)
  1. THALOMID [Suspect]
     Indication: METASTASES TO CENTRAL NERVOUS SYSTEM
     Dosage: 100 MG, DAILY, ORAL
     Route: 048
     Dates: start: 20040401, end: 20040814
  2. THALOMID [Suspect]
     Indication: NON-SMALL CELL LUNG CANCER
     Dosage: 100 MG, DAILY, ORAL
     Route: 048
     Dates: start: 20040401, end: 20040814
  3. TEMODAR [Suspect]
     Indication: METASTASES TO CENTRAL NERVOUS SYSTEM
  4. TEMODAR [Suspect]
     Indication: NON-SMALL CELL LUNG CANCER
  5. XELODA [Suspect]
     Indication: METASTASES TO CENTRAL NERVOUS SYSTEM
  6. XELODA [Suspect]
     Indication: NON-SMALL CELL LUNG CANCER
  7. PROCRIT [Concomitant]
  8. LOVENOX [Concomitant]
  9. COUMADIN [Concomitant]

REACTIONS (5)
  - ASTHENIA [None]
  - CONFUSIONAL STATE [None]
  - DEATH [None]
  - DEEP VEIN THROMBOSIS [None]
  - DISEASE PROGRESSION [None]
